FAERS Safety Report 23594138 (Version 1)
Quarter: 2024Q1

REPORT INFORMATION
  Report Type: Spontaneous
  Country: NL (occurrence: NL)
  Receive Date: 20240305
  Receipt Date: 20240305
  Transmission Date: 20240409
  Serious: Yes (Hospitalization, Other)
  Sender: FDA-Public Use
  Company Number: NL-ROCHE-3429965

PATIENT
  Age: 65 Year
  Sex: Female

DRUGS (2)
  1. BEVACIZUMAB [Suspect]
     Active Substance: BEVACIZUMAB
     Indication: Neoplasm
     Dosage: 1090 MILLIGRAM (MOST CURRENT ADMINISTRATION DATE WAS 31/AUG/2023)
     Route: 042
     Dates: start: 20230406
  2. ATEZOLIZUMAB [Suspect]
     Active Substance: ATEZOLIZUMAB
     Indication: Neoplasm
     Dosage: 1200 MILLIGRAM
     Route: 040
     Dates: start: 20230406

REACTIONS (2)
  - Disease progression [Unknown]
  - Ileus [Unknown]

NARRATIVE: CASE EVENT DATE: 20230923
